FAERS Safety Report 6830855-2 (Version None)
Quarter: 2010Q3

REPORT INFORMATION
  Report Type: 
  Country: None (occurrence: None)
  Receive Date: 20100712
  Receipt Date: 20100630
  Transmission Date: 20110219
  Serious: Yes (Other)
  Sender: FDA-Public Use
  Company Number: US-NOVOPROD-310990

PATIENT
  Sex: Female

DRUGS (2)
  1. NOVOLIN R [Suspect]
     Indication: PRODUCT USED FOR UNKNOWN INDICATION
     Dosage: SLIDING SCALE
     Route: 058
     Dates: start: 20080101
  2. LANTUS [Concomitant]
     Indication: PRODUCT USED FOR UNKNOWN INDICATION
     Dosage: 45 U, QD PM
     Route: 058

REACTIONS (1)
  - LUNG CARCINOMA CELL TYPE UNSPECIFIED STAGE III [None]
